FAERS Safety Report 5690690-8 (Version None)
Quarter: 2008Q1

REPORT INFORMATION
  Report Type: 
  Country: None (occurrence: None)
  Receive Date: 20080331
  Receipt Date: 20080331
  Transmission Date: 20080703
  Serious: Yes (Hospitalization)
  Sender: FDA-Public Use
  Company Number: None

PATIENT
  Age: 75 Year
  Sex: Male

DRUGS (1)
  1. LISINOPRIL [Suspect]
     Indication: SURGERY
     Dosage: 40MG BID PO
     Route: 048
     Dates: start: 20020417, end: 20080205

REACTIONS (1)
  - HYPERKALAEMIA [None]
